FAERS Safety Report 6666764-1 (Version None)
Quarter: 2010Q2

REPORT INFORMATION
  Report Type: 
  Country: None (occurrence: None)
  Receive Date: 20100405
  Receipt Date: 20100322
  Transmission Date: 20101027
  Serious: Yes (Hospitalization)
  Sender: FDA-Public Use
  Company Number: ES-RANBAXY-2010RR-32438

PATIENT
  Age: 48 Year
  Sex: Male

DRUGS (9)
  1. CARBILEV [Suspect]
     Indication: PARKINSON'S DISEASE
     Dosage: 250/1000 MG/DAY
  2. LEVODOPA [Suspect]
     Dosage: 300 MG, UNK
  3. LEVODOPA [Suspect]
     Dosage: 400 MG, UNK
  4. LEVODOPA [Suspect]
     Dosage: 800 MG, UNK
  5. AMANTADINE HCL [Concomitant]
     Indication: PARKINSON'S DISEASE
     Dosage: 300 MG, UNK
  6. AMANTADINE HCL [Concomitant]
     Dosage: 200 MG, UNK
  7. ROPINIROLE [Concomitant]
     Indication: PARKINSON'S DISEASE
     Dosage: 20 MG, UNK
  8. ENTACAPONE [Concomitant]
     Indication: PARKINSON'S DISEASE
     Dosage: 1000 MG, UNK
  9. QUETIAPINE [Concomitant]
     Dosage: 300 MG, UNK

REACTIONS (3)
  - DRUG ABUSE [None]
  - HYPERSEXUALITY [None]
  - PATHOLOGICAL GAMBLING [None]
